FAERS Safety Report 7279617-5 (Version None)
Quarter: 2010Q4

REPORT INFORMATION
  Report Type: 
  Country: None (occurrence: None)
  Receive Date: 20101221
  Receipt Date: 20100816
  Transmission Date: 20110411
  Serious: Yes (Other)
  Sender: FDA-Public Use
  Company Number: WAES 1008USA01863

PATIENT
  Age: 75 Year
  Sex: Male
  Weight: 90.2658 kg

DRUGS (1)
  1. JANUVIA [Suspect]
     Indication: DIABETES MELLITUS
     Dosage: 100 MG/DAILY/PO
     Route: 048

REACTIONS (2)
  - GASTROINTESTINAL PAIN [None]
  - PANCREATITIS [None]
